FAERS Safety Report 7500940-0 (Version None)
Quarter: 2011Q2

REPORT INFORMATION
  Report Type: 
  Country: None (occurrence: None)
  Receive Date: 20110524
  Receipt Date: 20110519
  Transmission Date: 20111010
  Serious: Yes (Other)
  Sender: FDA-Public Use
  Company Number: US-PFIZER INC-2011108883

PATIENT
  Sex: Female

DRUGS (2)
  1. SIMCOR [Suspect]
     Dosage: UNK
  2. GEMFIBROZIL [Suspect]
     Dosage: UNK

REACTIONS (2)
  - PRURITUS [None]
  - DIABETES MELLITUS [None]
